FAERS Safety Report 10083376 (Version 4)
Quarter: 2018Q1

REPORT INFORMATION
  Report Type: Report from Study
  Country: US (occurrence: US)
  Receive Date: 20140417
  Receipt Date: 20180327
  Transmission Date: 20180508
  Serious: Yes (Life-Threatening, Hospitalization, Other)
  Sender: FDA-Public Use
  Company Number: US-ROCHE-1383829

PATIENT
  Sex: Female

DRUGS (34)
  1. PROGESTERONE. [Concomitant]
     Active Substance: PROGESTERONE
     Route: 048
  2. OXYTOCINE [Concomitant]
  3. PHENERGAN [Concomitant]
     Active Substance: PROMETHAZINE HYDROCHLORIDE
  4. FLUDROCORTISONE [Concomitant]
     Active Substance: FLUDROCORTISONE
     Route: 065
  5. SEROTONIN [Concomitant]
     Active Substance: SEROTONIN
     Route: 065
  6. DURAGESIC [Concomitant]
     Active Substance: FENTANYL
     Route: 065
  7. PROMETHAZINE [Concomitant]
     Active Substance: PROMETHAZINE\PROMETHAZINE HYDROCHLORIDE
  8. BIOTINE (UNITED STATES) [Concomitant]
     Indication: DRY MOUTH
  9. NUTROPIN AQ [Suspect]
     Active Substance: SOMATROPIN
     Indication: HYPOPITUITARISM
     Route: 058
     Dates: start: 200803
  10. NAMENDA [Concomitant]
     Active Substance: MEMANTINE HYDROCHLORIDE
     Indication: MEMORY IMPAIRMENT
     Dosage: EVERY DAY
     Route: 065
  11. ADDERALL [Concomitant]
     Active Substance: AMPHETAMINE ASPARTATE\AMPHETAMINE SULFATE\DEXTROAMPHETAMINE SACCHARATE\DEXTROAMPHETAMINE SULFATE
  12. NUTROPIN AQ [Suspect]
     Active Substance: SOMATROPIN
     Route: 058
  13. DDAVP [Concomitant]
     Active Substance: DESMOPRESSIN ACETATE
     Route: 045
  14. BACLOFEN. [Concomitant]
     Active Substance: BACLOFEN
     Dosage: A NIGHT
     Route: 065
  15. VOLTAREN [Concomitant]
     Active Substance: DICLOFENAC SODIUM
     Route: 065
  16. TESTOSTERONE. [Concomitant]
     Active Substance: TESTOSTERONE
     Route: 065
  17. PREGNENOLONE [Concomitant]
     Active Substance: PREGNENOLONE
     Route: 065
  18. AMPHETAMINE [Concomitant]
     Active Substance: AMPHETAMINE
  19. CHORIONIC GONADOTROPIN [Concomitant]
     Active Substance: CHORIOGONADOTROPIN ALFA
     Route: 065
  20. HYDROCORTISONE. [Concomitant]
     Active Substance: HYDROCORTISONE
     Route: 042
  21. TRI-IODOTHYRONINE [Concomitant]
     Route: 065
  22. DHEA [Concomitant]
     Active Substance: PRASTERONE
     Route: 065
  23. AMBIEN [Concomitant]
     Active Substance: ZOLPIDEM TARTRATE
     Dosage: A NIGHT
     Route: 065
  24. DRONABINOL. [Concomitant]
     Active Substance: DRONABINOL
  25. OXYCONTIN [Concomitant]
     Active Substance: OXYCODONE HYDROCHLORIDE
  26. NUTROPIN AQ [Suspect]
     Active Substance: SOMATROPIN
     Route: 058
  27. LYRICA [Concomitant]
     Active Substance: PREGABALIN
     Route: 065
  28. CLONIDINE. [Concomitant]
     Active Substance: CLONIDINE
     Route: 065
  29. RESTASIS [Concomitant]
     Active Substance: CYCLOSPORINE
     Route: 065
  30. TETRAIODOTHYRONINE [Concomitant]
     Route: 065
  31. BI-EST [Concomitant]
     Dosage: 0.5MG OF ESTRADIOL AND 0.5MG OF ESTRIOL
     Route: 065
  32. PROVIGIL [Concomitant]
     Active Substance: MODAFINIL
     Route: 065
  33. DIFLUCAN [Concomitant]
     Active Substance: FLUCONAZOLE
     Indication: CHRONIC SINUSITIS
     Dosage: PER DAY
     Route: 065
  34. LIDOCAINE. [Concomitant]
     Active Substance: LIDOCAINE
     Route: 065

REACTIONS (15)
  - Coma [Not Recovered/Not Resolved]
  - Fall [Unknown]
  - Hyperhidrosis [Unknown]
  - Pollakiuria [Unknown]
  - Clostridium difficile infection [Unknown]
  - Lyme disease [Unknown]
  - Respiratory disorder [Not Recovered/Not Resolved]
  - Rib fracture [Unknown]
  - Pain [Unknown]
  - Dysphonia [Unknown]
  - Hot flush [Unknown]
  - Compression fracture [Unknown]
  - Respiratory failure [Unknown]
  - Nasopharyngitis [Unknown]
  - Hepatic failure [Unknown]
